FAERS Safety Report 8890153 (Version 1)
Quarter: 2012Q4

REPORT INFORMATION
  Report Type: 
  Country: CA (occurrence: CA)
  Receive Date: 20121106
  Receipt Date: 20121106
  Transmission Date: 20130627
  Serious: Yes (Other)
  Sender: FDA-Public Use
  Company Number: PHHY2009CA11143

PATIENT
  Sex: Male

DRUGS (1)
  1. SANDOSTATIN LAR [Suspect]
     Indication: NEUROENDOCRINE TUMOUR
     Dosage: 40 mg, QMO
     Route: 030
     Dates: start: 20050520

REACTIONS (7)
  - Large intestine polyp [Unknown]
  - Abdominal pain lower [Unknown]
  - Dry skin [Unknown]
  - Pruritus [Unknown]
  - Flushing [Unknown]
  - Diarrhoea [Unknown]
  - Rash [Recovering/Resolving]
